FAERS Safety Report 5874706-1 (Version None)
Quarter: 2008Q3

REPORT INFORMATION
  Report Type: 
  Country: None (occurrence: None)
  Receive Date: 20080909
  Receipt Date: 20080829
  Transmission Date: 20090109
  Serious: Yes (Death, Other)
  Sender: FDA-Public Use
  Company Number: JP-JNJFOC-20080900032

PATIENT
  Age: 75 Year
  Sex: Male

DRUGS (10)
  1. CRAVIT [Suspect]
     Route: 048
  2. CRAVIT [Suspect]
     Indication: POST PROCEDURAL INFECTION
     Route: 048
  3. FERROMIA [Concomitant]
     Route: 065
  4. SENEVACUL [Concomitant]
     Dosage: 2 DP
     Route: 065
  5. LANSOPRAZOLE [Concomitant]
     Route: 065
  6. ANCARON [Concomitant]
     Route: 065
  7. ASPIRIN [Concomitant]
     Route: 065
  8. PLAVIX [Concomitant]
     Route: 065
  9. LIPITOR [Concomitant]
     Route: 065
  10. URSO 250 [Concomitant]
     Route: 065

REACTIONS (3)
  - BLOOD GLUCOSE DECREASED [None]
  - DEATH [None]
  - DEPRESSED LEVEL OF CONSCIOUSNESS [None]
